FAERS Safety Report 9341327 (Version 1)
Quarter: 2013Q2

REPORT INFORMATION
  Report Type: Report from Study
  Country: GB (occurrence: GB)
  Receive Date: 20130611
  Receipt Date: 20130611
  Transmission Date: 20140414
  Serious: Yes (Hospitalization, Disabling)
  Sender: FDA-Public Use
  Company Number: GB-CELGENEUS-167-C5013-12110265

PATIENT
  Age: 66 Year
  Sex: Male
  Weight: 94.5 kg

DRUGS (9)
  1. CC-5013 [Suspect]
     Indication: CHRONIC LYMPHOCYTIC LEUKAEMIA
     Dosage: 2.5 MILLIGRAM
     Route: 048
     Dates: start: 20120820
  2. CC-5013 [Suspect]
     Dosage: 5 MILLIGRAM
     Route: 048
     Dates: start: 20121018, end: 20121029
  3. CC-5013 [Suspect]
     Dosage: 2.5 MILLIGRAM
     Route: 048
     Dates: start: 20121108
  4. CC-5013 [Suspect]
     Dosage: 2.5 MILLIGRAM
     Route: 048
     Dates: start: 20121115, end: 20121121
  5. CC-5013 [Suspect]
     Dosage: 1.25 MILLIGRAM
     Route: 048
     Dates: end: 20121210
  6. CC-5013 [Suspect]
     Dosage: 1.25 MILLIGRAM
     Route: 048
     Dates: start: 20121219
  7. ALLOPURINOL [Concomitant]
     Indication: PROPHYLAXIS
     Dosage: 300 MILLIGRAM
     Route: 048
     Dates: start: 20120817
  8. TRANEXAMIC ACID [Concomitant]
     Indication: PRODUCT USED FOR UNKNOWN INDICATION
     Dosage: 4 GRAM
     Route: 048
     Dates: start: 20121031
  9. GAMMAPLEX [Concomitant]
     Indication: THROMBOCYTOPENIA
     Dosage: 90 GRAM
     Route: 041

REACTIONS (3)
  - Idiopathic thrombocytopenic purpura [Recovered/Resolved]
  - Idiopathic thrombocytopenic purpura [Recovered/Resolved]
  - Lower respiratory tract infection [Recovered/Resolved]
